FAERS Safety Report 24004064 (Version 1)
Quarter: 2024Q2

REPORT INFORMATION
  Report Type: Spontaneous
  Country: US (occurrence: US)
  Receive Date: 20240624
  Receipt Date: 20240624
  Transmission Date: 20240715
  Serious: No
  Sender: FDA-Public Use
  Company Number: US-ABBVIE-5811540

PATIENT
  Age: 29 Year
  Sex: Female
  Weight: 65.8 kg

DRUGS (2)
  1. SAPHRIS [Suspect]
     Active Substance: ASENAPINE MALEATE
     Indication: Antipsychotic therapy
     Dosage: FORM STRENGTH: 10 MILLIGRAM
     Route: 060
     Dates: start: 20240101, end: 20240108
  2. SAPHRIS [Suspect]
     Active Substance: ASENAPINE MALEATE
     Indication: Antipsychotic therapy
     Dosage: FORM STRENGTH: 20 MILLIGRAM
     Route: 060
     Dates: start: 20240108, end: 202402

REACTIONS (3)
  - Gingival bleeding [Recovered/Resolved]
  - Dental caries [Not Recovered/Not Resolved]
  - Faeces discoloured [Recovered/Resolved]

NARRATIVE: CASE EVENT DATE: 20240101
